FAERS Safety Report 7308114-3 (Version None)
Quarter: 2011Q1

REPORT INFORMATION
  Report Type: 
  Country: None (occurrence: None)
  Receive Date: 20110223
  Receipt Date: 20110221
  Transmission Date: 20110831
  Serious: Yes (Death, Hospitalization)
  Sender: FDA-Public Use
  Company Number: JP-BAYER-2011-016612

PATIENT
  Sex: Male
  Weight: 70 kg

DRUGS (3)
  1. ADALAT [Concomitant]
     Dosage: DAILY DOSE 20 MG
     Route: 048
  2. GLIMICRON [Concomitant]
     Dosage: DAILY DOSE 80 MG
     Route: 048
  3. NEXAVAR [Suspect]
     Indication: HEPATIC NEOPLASM MALIGNANT
     Dosage: 800 MG, QD
     Route: 048
     Dates: start: 20090618, end: 20090807

REACTIONS (2)
  - HEPATIC NEOPLASM MALIGNANT [None]
  - HEPATIC ENCEPHALOPATHY [None]
